FAERS Safety Report 11630377 (Version 2)
Quarter: 2015Q4

REPORT INFORMATION
  Report Type: Spontaneous
  Country: IT (occurrence: IT)
  Receive Date: 20151014
  Receipt Date: 20151016
  Transmission Date: 20160304
  Serious: Yes (Hospitalization)
  Sender: FDA-Public Use
  Company Number: IT-TEVA-600288ACC

PATIENT
  Age: 85 Year
  Sex: Female

DRUGS (5)
  1. FLUOXETINE [Suspect]
     Active Substance: FLUOXETINE HYDROCHLORIDE
     Indication: DEPRESSION
  2. VALPRESSION - 80 MG CAPSULE [Concomitant]
     Indication: HYPERTENSION
     Route: 048
  3. FLUOXETINE [Suspect]
     Active Substance: FLUOXETINE HYDROCHLORIDE
     Indication: DRUG ABUSE
     Dosage: 360 MG TOTAL
     Route: 048
     Dates: start: 20150903, end: 20150903
  4. SOTALOL. [Concomitant]
     Active Substance: SOTALOL
     Indication: HYPERTENSION
  5. ALPRAZOLAM. [Suspect]
     Active Substance: ALPRAZOLAM
     Indication: DRUG ABUSE
     Dosage: 40 ML TOTAL
     Route: 048
     Dates: start: 20150903, end: 20150903

REACTIONS (6)
  - Intentional self-injury [Recovered/Resolved]
  - Hypertension [Recovered/Resolved]
  - Sopor [Recovered/Resolved]
  - Toxicity to various agents [Recovered/Resolved]
  - Drug abuse [Recovered/Resolved]
  - Loss of consciousness [Recovered/Resolved]

NARRATIVE: CASE EVENT DATE: 201509
